FAERS Safety Report 18732656 (Version 2)
Quarter: 2021Q1

REPORT INFORMATION
  Report Type: Spontaneous
  Country: US (occurrence: US)
  Receive Date: 20210113
  Receipt Date: 20210203
  Transmission Date: 20210419
  Serious: No
  Sender: FDA-Public Use
  Company Number: US-JNJFOC-20201241313

PATIENT
  Age: 62 Year
  Sex: Female
  Weight: 64.92 kg

DRUGS (12)
  1. COENZYME Q10 [Concomitant]
     Active Substance: DIETARY SUPPLEMENT\UBIDECARENONE
     Indication: ROUTINE HEALTH MAINTENANCE
     Route: 065
     Dates: start: 2020
  2. VITAMIN K [PHYTOMENADIONE] [Concomitant]
     Indication: VITAMIN K DEFICIENCY
     Route: 065
     Dates: start: 2020
  3. RESTASIS [Concomitant]
     Active Substance: CYCLOSPORINE
     Indication: DRY EYE
     Route: 065
  4. BIOTIN [Concomitant]
     Active Substance: BIOTIN
     Indication: PRODUCT USED FOR UNKNOWN INDICATION
     Route: 065
     Dates: start: 2020
  5. WOMENS ROGAINE UNSCENTED [Suspect]
     Active Substance: MINOXIDIL
     Indication: ALOPECIA
     Dosage: DOSE: ONE PUMP
     Route: 061
     Dates: start: 20201203, end: 20201205
  6. LIVALO [Concomitant]
     Active Substance: PITAVASTATIN CALCIUM
     Indication: BLOOD CHOLESTEROL
     Route: 065
     Dates: start: 2020
  7. RESTASIS [Concomitant]
     Active Substance: CYCLOSPORINE
     Indication: DRY EYE
     Route: 065
     Dates: start: 2020
  8. BIOTIN [Concomitant]
     Active Substance: BIOTIN
     Indication: PRODUCT USED FOR UNKNOWN INDICATION
  9. OMEGA 7 [Concomitant]
     Indication: DRY EYE
     Route: 065
     Dates: start: 2020
  10. COLACE [Concomitant]
     Active Substance: DOCUSATE SODIUM
     Indication: ROUTINE HEALTH MAINTENANCE
     Route: 065
     Dates: start: 2020
  11. VITAMIN D [ERGOCALCIFEROL] [Concomitant]
     Active Substance: ERGOCALCIFEROL
     Indication: VITAMIN D DEFICIENCY
     Route: 065
     Dates: start: 2020
  12. LIVALO [Concomitant]
     Active Substance: PITAVASTATIN CALCIUM
     Indication: BLOOD CHOLESTEROL
     Route: 065

REACTIONS (4)
  - Incorrect dose administered [Unknown]
  - Application site erythema [Recovered/Resolved]
  - Acne pustular [Recovered/Resolved]
  - Application site pruritus [Recovered/Resolved]

NARRATIVE: CASE EVENT DATE: 20201203
